FAERS Safety Report 4634811-4 (Version None)
Quarter: 2005Q2

REPORT INFORMATION
  Report Type: 
  Country: None (occurrence: None)
  Receive Date: 20050412
  Receipt Date: 20041220
  Transmission Date: 20051028
  Serious: Yes (Other)
  Sender: FDA-Public Use
  Company Number: 2004116462

PATIENT
  Sex: 0

DRUGS (2)
  1. VIRACEPT [Suspect]
     Indication: HIV TEST POSITIVE
     Dosage: ORAL
     Route: 048
  2. LAMIVUDINE AND ZIDOVUDINE [Suspect]
     Indication: HIV TEST POSITIVE
     Dosage: ORAL
     Route: 048

REACTIONS (3)
  - ASCITES [None]
  - DRUG EXPOSURE DURING PREGNANCY [None]
  - ULTRASOUND ABDOMEN ABNORMAL [None]
